FAERS Safety Report 6566396-X (Version None)
Quarter: 2010Q1

REPORT INFORMATION
  Report Type: 
  Country: None (occurrence: None)
  Receive Date: 20100127
  Receipt Date: 20100115
  Transmission Date: 20100710
  Serious: Yes (Hospitalization)
  Sender: FDA-Public Use
  Company Number: SPV1-2010-00098

PATIENT
  Age: 66 Year
  Sex: Male
  Weight: 109.3 kg

DRUGS (3)
  1. MEZAVANT(MESALAZINE,MESALAMINE) TABLET [Suspect]
     Indication: GASTROENTERITIS RADIATION
     Dosage: 4.8 G, 1X/DAY:QD, ORAL
     Route: 048
     Dates: start: 20091229, end: 20100108
  2. MEZAVANT(MESALAZINE,MESALAMINE) TABLET [Suspect]
     Indication: GASTROENTERITIS RADIATION
     Dosage: 4.8 G, 1X/DAY:QD, ORAL
     Route: 048
     Dates: start: 20100111, end: 20100111
  3. BUDESONIDE [Concomitant]

REACTIONS (13)
  - ASTHENIA [None]
  - CHROMATURIA [None]
  - DYSPNOEA [None]
  - GAIT DISTURBANCE [None]
  - LUNG DISORDER [None]
  - MALAISE [None]
  - NAUSEA [None]
  - OFF LABEL USE [None]
  - PAIN [None]
  - PRURITUS [None]
  - PYREXIA [None]
  - TREMOR [None]
  - URINE ODOUR ABNORMAL [None]
